FAERS Safety Report 11205371 (Version 3)
Quarter: 2015Q3

REPORT INFORMATION
  Report Type: Report from Study
  Country: US (occurrence: None)
  Receive Date: 20150619
  Receipt Date: 20150908
  Transmission Date: 20151125
  Serious: Yes (Hospitalization, Other)
  Sender: FDA-Public Use
  Company Number: US-2015CRT000412

PATIENT
  Age: 21 Year
  Sex: Female
  Weight: 54 kg

DRUGS (6)
  1. KORLYM [Suspect]
     Active Substance: MIFEPRISTONE
     Indication: PITUITARY-DEPENDENT CUSHING^S SYNDROME
     Route: 048
     Dates: start: 20131118, end: 20141229
  2. ANTIHYPERTENSIVES [Concomitant]
     Active Substance: UNSPECIFIED INGREDIENT
  3. INSULIN [Concomitant]
     Active Substance: INSULIN NOS
  4. SPIRONOLACTONE. [Concomitant]
     Active Substance: SPIRONOLACTONE
  5. ANTIDIAB [Concomitant]
  6. THYROID THERAPY [Concomitant]
     Active Substance: UNSPECIFIED INGREDIENT

REACTIONS (12)
  - Cystitis [None]
  - Blood glucose increased [None]
  - Oral mucosal blistering [None]
  - Lip blister [None]
  - Insomnia [None]
  - Infection [None]
  - Fungal infection [None]
  - Blood potassium decreased [None]
  - Blood glucose decreased [None]
  - Abdominal infection [None]
  - Kidney infection [None]
  - Pneumonia aspiration [None]

NARRATIVE: CASE EVENT DATE: 201501
